FAERS Safety Report 16575047 (Version 4)
Quarter: 2021Q3

REPORT INFORMATION
  Report Type: Report from Study
  Country: US (occurrence: US)
  Receive Date: 20190715
  Receipt Date: 20210706
  Transmission Date: 20211014
  Serious: Yes (Life-Threatening, Hospitalization)
  Sender: FDA-Public Use
  Company Number: PHHY2017US193610

PATIENT
  Age: 8 Year
  Sex: Female
  Weight: 29.5 kg

DRUGS (37)
  1. ILARIS [Suspect]
     Active Substance: CANAKINUMAB
     Indication: STILL^S DISEASE
     Dosage: 82 MG, QD
     Route: 065
     Dates: start: 20150822, end: 20150917
  2. CICLOSPORIN [Suspect]
     Active Substance: CYCLOSPORINE
     Indication: HAEMOPHAGOCYTIC LYMPHOHISTIOCYTOSIS
     Dosage: 35 MG/KG, QD
     Route: 065
     Dates: start: 20151107, end: 20151117
  3. CICLOSPORIN [Suspect]
     Active Substance: CYCLOSPORINE
     Dosage: 150 MG, QD
     Route: 065
     Dates: start: 20151117, end: 20151120
  4. CICLOSPORIN [Suspect]
     Active Substance: CYCLOSPORINE
     Dosage: 50 MG, QD
     Route: 065
     Dates: start: 20160119, end: 20160225
  5. CICLOSPORIN [Suspect]
     Active Substance: CYCLOSPORINE
     Dosage: 50 MG, QD
     Route: 065
     Dates: start: 20160225, end: 20160317
  6. KINERET [Suspect]
     Active Substance: ANAKINRA
     Indication: HAEMOPHAGOCYTIC LYMPHOHISTIOCYTOSIS
     Dosage: 100 MG, QD
     Route: 065
     Dates: start: 20150927, end: 20151023
  7. KINERET [Suspect]
     Active Substance: ANAKINRA
     Dosage: 100 MG, QD
     Route: 065
     Dates: start: 20160728, end: 20160912
  8. CALCIUM [Concomitant]
     Active Substance: CALCIUM
     Indication: NUTRITIONAL SUPPLEMENTATION
     Dosage: 950 MG, QD
     Route: 065
     Dates: start: 20151109
  9. CICLOSPORIN [Suspect]
     Active Substance: CYCLOSPORINE
     Dosage: 50 MG, QD (IN AM)
     Route: 065
     Dates: start: 20160104, end: 20160119
  10. CICLOSPORIN [Suspect]
     Active Substance: CYCLOSPORINE
     Dosage: 50 MG, QHS (IN PM)
     Route: 065
     Dates: start: 20161205, end: 20161219
  11. KINERET [Suspect]
     Active Substance: ANAKINRA
     Dosage: 100 MG, QD
     Route: 065
     Dates: start: 20160505, end: 20160728
  12. ACTEMRA [Suspect]
     Active Substance: TOCILIZUMAB
     Indication: HAEMOPHAGOCYTIC LYMPHOHISTIOCYTOSIS
     Dosage: 240 MG
     Route: 065
     Dates: start: 20170703, end: 20171204
  13. VITAMIN D3 [Concomitant]
     Active Substance: CHOLECALCIFEROL
     Indication: PRODUCT USED FOR UNKNOWN INDICATION
     Dosage: 5000 IU, QD
     Route: 065
     Dates: start: 20151109
  14. CICLOSPORIN [Suspect]
     Active Substance: CYCLOSPORINE
     Dosage: 25 MG, QD
     Route: 065
     Dates: start: 20160317, end: 20160422
  15. CICLOSPORIN [Suspect]
     Active Substance: CYCLOSPORINE
     Dosage: 25 MG, QD
     Route: 065
     Dates: start: 20160422, end: 20160505
  16. CICLOSPORIN [Suspect]
     Active Substance: CYCLOSPORINE
     Dosage: 50 MG, QD
     Route: 065
     Dates: start: 20161219, end: 20170109
  17. NORVASC [Concomitant]
     Active Substance: AMLODIPINE BESYLATE
     Indication: HYPERTENSION
     Dosage: 10 MG, QD
     Route: 065
     Dates: start: 20151130
  18. CICLOSPORIN [Suspect]
     Active Substance: CYCLOSPORINE
     Dosage: 75 MG, QD
     Route: 065
     Dates: start: 20151201, end: 20160104
  19. CICLOSPORIN [Suspect]
     Active Substance: CYCLOSPORINE
     Dosage: 75 MG, QD
     Route: 065
     Dates: start: 20160922, end: 20160924
  20. CICLOSPORIN [Suspect]
     Active Substance: CYCLOSPORINE
     Dosage: 25 MG, QD
     Route: 065
     Dates: start: 20170123, end: 20170206
  21. CICLOSPORIN [Suspect]
     Active Substance: CYCLOSPORINE
     Dosage: 25 MG, QD
     Route: 065
     Dates: start: 20170206, end: 20170306
  22. INDOMETHACIN. [Suspect]
     Active Substance: INDOMETHACIN
     Indication: JUVENILE IDIOPATHIC ARTHRITIS
     Dosage: 25 MG
     Route: 065
     Dates: start: 20201015
  23. KINERET [Suspect]
     Active Substance: ANAKINRA
     Dosage: 100 MG, QD
     Route: 065
     Dates: start: 20170607, end: 20170619
  24. KINERET [Suspect]
     Active Substance: ANAKINRA
     Dosage: UNK
     Route: 065
     Dates: start: 20160918
  25. CICLOSPORIN [Suspect]
     Active Substance: CYCLOSPORINE
     Dosage: 125 MG, QD
     Route: 065
     Dates: start: 20151120, end: 20151201
  26. KINERET [Suspect]
     Active Substance: ANAKINRA
     Dosage: 100 MG, QD
     Route: 065
     Dates: start: 20160912, end: 20170607
  27. KINERET [Suspect]
     Active Substance: ANAKINRA
     Dosage: 50 MG, QD
     Route: 065
     Dates: start: 20170619, end: 20170627
  28. ACTEMRA [Suspect]
     Active Substance: TOCILIZUMAB
     Dosage: 162 UNK
     Route: 065
     Dates: start: 20200615
  29. MULTI VITAMIN [Concomitant]
     Active Substance: VITAMINS
     Indication: NUTRITIONAL SUPPLEMENTATION
     Dosage: 1 DF, QD
     Route: 065
     Dates: start: 20150925
  30. FERROUS SULFATE. [Concomitant]
     Active Substance: FERROUS SULFATE
     Indication: MICROCYTIC ANAEMIA
     Dosage: 325 MG, QD
     Route: 065
     Dates: start: 20151104
  31. OMEPRAZOLE. [Concomitant]
     Active Substance: OMEPRAZOLE
     Indication: GASTROOESOPHAGEAL REFLUX DISEASE
     Dosage: 20 MG, QD
     Route: 065
     Dates: start: 20151023
  32. PREDNISONE. [Concomitant]
     Active Substance: PREDNISONE
     Indication: STILL^S DISEASE
     Dosage: 60 MG, UNK
     Route: 065
     Dates: start: 20150920
  33. CICLOSPORIN [Suspect]
     Active Substance: CYCLOSPORINE
     Dosage: 75 MG, QD (IN AM)
     Route: 065
     Dates: start: 20160924, end: 20161017
  34. KINERET [Suspect]
     Active Substance: ANAKINRA
     Indication: STILL^S DISEASE
     Dosage: 100 MG, QD
     Route: 065
     Dates: start: 20151210, end: 20160505
  35. ACTEMRA [Suspect]
     Active Substance: TOCILIZUMAB
     Indication: JUVENILE IDIOPATHIC ARTHRITIS
     Dosage: 360 UNK
     Route: 065
     Dates: start: 20171204, end: 20190905
  36. CICLOSPORIN [Suspect]
     Active Substance: CYCLOSPORINE
     Dosage: 75 MG, QD
     Route: 065
     Dates: start: 20161017, end: 20161205
  37. CICLOSPORIN [Suspect]
     Active Substance: CYCLOSPORINE
     Dosage: 50 MG, UNK (25 MG IN AM)
     Route: 065
     Dates: start: 20170109, end: 20170123

REACTIONS (6)
  - Serum ferritin increased [Recovered/Resolved]
  - Liver function test increased [Recovered/Resolved]
  - Influenza [Recovered/Resolved]
  - Headache [Unknown]
  - Haemophagocytic lymphohistiocytosis [Recovered/Resolved]
  - Pyrexia [Unknown]

NARRATIVE: CASE EVENT DATE: 20160508
